FAERS Safety Report 7817766-0 (Version None)
Quarter: 2011Q4

REPORT INFORMATION
  Report Type: 
  Country: None (occurrence: None)
  Receive Date: 20111017
  Receipt Date: 20111013
  Transmission Date: 20120403
  Serious: Yes (Hospitalization, Disabling, Other)
  Sender: FDA-Public Use
  Company Number: US-TEVA-289287USA

PATIENT
  Sex: Female

DRUGS (2)
  1. ALENDRONIC ACID [Suspect]
     Indication: OSTEOPOROSIS
     Dates: start: 20080101
  2. ALENDRONATE SODIUM [Suspect]
     Dosage: 10 MILLIGRAM;
     Dates: start: 20010101

REACTIONS (4)
  - FEMUR FRACTURE [None]
  - GAIT DISTURBANCE [None]
  - RESPIRATORY FAILURE [None]
  - SCAR [None]
